FAERS Safety Report 20152032 (Version 1)
Quarter: 2021Q4

REPORT INFORMATION
  Report Type: Spontaneous
  Country: US (occurrence: None)
  Receive Date: 20211205
  Receipt Date: 20211205
  Transmission Date: 20220303
  Serious: Yes (Death)
  Sender: FDA-Public Use
  Company Number: None

PATIENT
  Age: 88 Year
  Sex: Male
  Weight: 67.9 kg

DRUGS (10)
  1. REMDESIVIR [Suspect]
     Active Substance: REMDESIVIR
     Indication: COVID-19 pneumonia
     Dosage: FREQUENCY : DAILY;?
     Route: 042
     Dates: start: 20211130, end: 20211204
  2. CLONAZEPAM [Concomitant]
     Active Substance: CLONAZEPAM
     Dates: start: 20211201, end: 20211204
  3. ALBUTEROL [Concomitant]
     Active Substance: ALBUTEROL
     Dates: start: 20211202, end: 20211204
  4. Enoxaparin 80 mg [Concomitant]
     Dates: start: 20211202, end: 20211204
  5. TRELEGY ELLIPTA [Concomitant]
     Active Substance: FLUTICASONE FUROATE\UMECLIDINIUM BROMIDE\VILANTEROL TRIFENATATE
     Dates: start: 20211202, end: 20211204
  6. Melatonin 6 mg [Concomitant]
     Dates: start: 20211202
  7. ONDANSETRON [Concomitant]
     Active Substance: ONDANSETRON
     Dates: start: 20211204, end: 20211204
  8. SOTALOL [Concomitant]
     Active Substance: SOTALOL
     Dates: start: 20211201, end: 20211204
  9. Insulin aspart 100 units/ml [Concomitant]
     Dates: start: 20211202, end: 20211204
  10. WARFARIN [Concomitant]
     Active Substance: WARFARIN
     Dates: start: 20211202, end: 20211203

REACTIONS (4)
  - Blood creatinine increased [None]
  - Alanine aminotransferase increased [None]
  - Respiratory arrest [None]
  - Pulse absent [None]

NARRATIVE: CASE EVENT DATE: 20211205
